FAERS Safety Report 7226675-X (Version None)
Quarter: 2011Q1

REPORT INFORMATION
  Report Type: 
  Country: None (occurrence: None)
  Receive Date: 20110110
  Receipt Date: 20110110
  Transmission Date: 20110831
  Serious: Yes (Other)
  Sender: FDA-Public Use
  Company Number: None

PATIENT
  Age: 20 Year
  Sex: Male
  Weight: 70.5 kg

DRUGS (1)
  1. CEFDINIR [Suspect]
     Indication: TONSILLITIS
     Dosage: 300 MG 2 CAPSULES DAILY MOUTH
     Route: 048
     Dates: start: 20101230, end: 20110105

REACTIONS (3)
  - NAUSEA [None]
  - VIRAL INFECTION [None]
  - VOMITING [None]
